FAERS Safety Report 9999579 (Version 1)
Quarter: 2014Q1

REPORT INFORMATION
  Report Type: Spontaneous
  Country: US (occurrence: US)
  Receive Date: 20140312
  Receipt Date: 20140312
  Transmission Date: 20141002
  Serious: Yes (Hospitalization, Other)
  Sender: FDA-Public Use
  Company Number: US-AMGEN-USASP2014016546

PATIENT
  Age: 67 Year
  Sex: Female

DRUGS (1)
  1. ENBREL [Suspect]
     Indication: PSORIASIS
     Dosage: 50 MG, QWK
     Route: 065
     Dates: end: 201312

REACTIONS (6)
  - Osteoarthritis [Recovered/Resolved]
  - Chondrolysis [Recovered/Resolved]
  - Knee deformity [Recovered/Resolved]
  - Gait disturbance [Recovered/Resolved]
  - Cellulitis [Recovered/Resolved]
  - Ulcer [Recovered/Resolved]
